FAERS Safety Report 15202238 (Version 4)
Quarter: 2018Q3

REPORT INFORMATION
  Report Type: Spontaneous
  Country: US (occurrence: US)
  Receive Date: 20180726
  Receipt Date: 20180919
  Transmission Date: 20181010
  Serious: Yes (Life-Threatening, Hospitalization, Disabling, Other)
  Sender: FDA-Public Use
  Company Number: US-JNJFOC-20180721748

PATIENT
  Age: 73 Year
  Sex: Female
  Weight: 63.5 kg

DRUGS (10)
  1. PREDNISONE. [Suspect]
     Active Substance: PREDNISONE
     Indication: RASH
     Route: 065
     Dates: start: 201801
  2. PREDNISONE. [Suspect]
     Active Substance: PREDNISONE
     Indication: RASH
     Route: 042
     Dates: start: 20180326
  3. PREVACID [Concomitant]
     Active Substance: LANSOPRAZOLE
     Indication: GASTROOESOPHAGEAL REFLUX DISEASE
     Route: 065
  4. SIMPONI ARIA [Suspect]
     Active Substance: GOLIMUMAB
     Indication: RHEUMATOID ARTHRITIS
     Dosage: LOADING DOSE, FIRST INFUSION????1 OR 2 TOTAL NUMBER OF INJECTIONS
     Route: 042
     Dates: start: 20171222, end: 201801
  5. PREDNISONE. [Suspect]
     Active Substance: PREDNISONE
     Indication: RASH
     Route: 065
  6. ATENOLOL. [Concomitant]
     Active Substance: ATENOLOL
     Indication: HYPERTENSION
     Route: 065
  7. AMLODIPINE [Concomitant]
     Active Substance: AMLODIPINE BESYLATE
     Indication: HYPERTENSION
     Dosage: FOR YEARS
     Route: 065
  8. FOSAMAX [Concomitant]
     Active Substance: ALENDRONATE SODIUM
     Route: 065
  9. PREDNISONE. [Concomitant]
     Active Substance: PREDNISONE
     Route: 065
  10. PROZAC [Concomitant]
     Active Substance: FLUOXETINE HYDROCHLORIDE
     Route: 065

REACTIONS (4)
  - Weight increased [Not Recovered/Not Resolved]
  - Drug hypersensitivity [Recovering/Resolving]
  - Confusional state [Recovered/Resolved]
  - Abnormal loss of weight [Recovered/Resolved]

NARRATIVE: CASE EVENT DATE: 201801
